FAERS Safety Report 8506095-8 (Version None)
Quarter: 2012Q3

REPORT INFORMATION
  Report Type: 
  Country: None (occurrence: None)
  Receive Date: 20120712
  Receipt Date: 20120710
  Transmission Date: 20120928
  Serious: Yes (Other)
  Sender: FDA-Public Use
  Company Number: FR-ROCHE-1072958

PATIENT
  Sex: Female
  Weight: 83 kg

DRUGS (7)
  1. VINCRISTINE [Suspect]
     Indication: B-CELL LYMPHOMA
     Dosage: LAST DOSE PRIOR TO SAE ON 26 APR 2007
     Route: 042
     Dates: start: 20070111
  2. MABTHERA [Suspect]
     Indication: B-CELL LYMPHOMA
     Dosage: DATE OF LAST DOSE PRIOR TO SAE, 07 JUN 2007
     Route: 042
     Dates: start: 20070111, end: 20070607
  3. PREDNISONE TAB [Suspect]
     Indication: B-CELL LYMPHOMA
     Dosage: LAST DOSE PRIOR TO SAE ON 30 APR 2007
     Route: 042
  4. PREDNISONE [Suspect]
     Route: 048
  5. MABTHERA [Suspect]
     Route: 042
     Dates: start: 20090316, end: 20090509
  6. CYCLOPHOSPHAMIDE [Suspect]
     Indication: B-CELL LYMPHOMA
     Dosage: LAST DOSE PRIOR TO SAE ON 26 APR 2007
     Route: 042
     Dates: start: 20070111
  7. DOXORUBICIN HCL [Suspect]
     Indication: B-CELL LYMPHOMA
     Dosage: LAST DOSE PRIOR TO SAE ON 26 APR 2007
     Route: 042
     Dates: start: 20070111

REACTIONS (1)
  - BREAST CANCER [None]
